FAERS Safety Report 4768878-X (Version None)
Quarter: 2005Q3

REPORT INFORMATION
  Report Type: 
  Country: None (occurrence: None)
  Receive Date: 20050914
  Receipt Date: 20050830
  Transmission Date: 20060218
  Serious: Yes (Death)
  Sender: FDA-Public Use
  Company Number: 2005-DE-03501GD

PATIENT
  Sex: Female

DRUGS (3)
  1. INTERFERON GAMMA (INTERFERON GAMMA) [Suspect]
     Indication: COCCIDIOIDOMYCOSIS
  2. FLUCONAZOLE [Suspect]
     Indication: COCCIDIOIDOMYCOSIS
     Dosage: 1600 MG PO
     Route: 048
  3. VORICONAZOLE (VORICONAZOLE) [Suspect]
     Indication: COCCIDIOIDOMYCOSIS
     Dosage: 400 MG

REACTIONS (7)
  - ABDOMINAL ABSCESS [None]
  - BONE LESION [None]
  - COCCIDIOIDOMYCOSIS [None]
  - CULTURE WOUND POSITIVE [None]
  - DISEASE PROGRESSION [None]
  - FUNGUS BODY FLUID IDENTIFIED [None]
  - PERITONITIS [None]
